FAERS Safety Report 5127646-X (Version None)
Quarter: 2006Q4

REPORT INFORMATION
  Report Type: 
  Country: None (occurrence: None)
  Receive Date: 20061016
  Receipt Date: 20060920
  Transmission Date: 20070319
  Serious: Yes (Other)
  Sender: FDA-Public Use
  Company Number: PHEH2006US11985

PATIENT
  Age: 55 Year
  Sex: Male

DRUGS (3)
  1. CYTADREN [Suspect]
     Indication: CUSHING'S SYNDROME
     Dosage: 250 MG, 6QD
     Route: 048
     Dates: end: 20060818
  2. CYTADREN [Suspect]
     Dosage: UNKNOWN
     Dates: start: 20060908, end: 20060901
  3. CYTADREN [Suspect]
     Dosage: 250 MG, TID
     Dates: start: 20060911

REACTIONS (4)
  - BILIARY TRACT DISORDER [None]
  - HEPATECTOMY [None]
  - PYREXIA [None]
  - SOMNOLENCE [None]
